FAERS Safety Report 7025384-X (Version None)
Quarter: 2010Q4

REPORT INFORMATION
  Report Type: 
  Country: None (occurrence: None)
  Receive Date: 20101001
  Receipt Date: 20100921
  Transmission Date: 20110411
  Serious: Yes (Hospitalization)
  Sender: FDA-Public Use
  Company Number: PHHY2010SK57519

PATIENT
  Age: 29 Year
  Sex: Female

DRUGS (1)
  1. ACLASTA [Suspect]
     Indication: OSTEOPOROSIS
     Dosage: 5 MG
     Route: 042
     Dates: start: 20100714

REACTIONS (6)
  - ARTHRALGIA [None]
  - CHEST PAIN [None]
  - CHILLS [None]
  - HEADACHE [None]
  - MYALGIA [None]
  - PYREXIA [None]
